FAERS Safety Report 15695820 (Version 1)
Quarter: 2018Q4

REPORT INFORMATION
  Report Type: Spontaneous
  Country: CZ (occurrence: CZ)
  Receive Date: 20181206
  Receipt Date: 20181206
  Transmission Date: 20190205
  Serious: Yes (Other)
  Sender: FDA-Public Use
  Company Number: CZ-FRESENIUS KABI-FK201812354

PATIENT
  Sex: Male

DRUGS (7)
  1. LEUCOVORIN CALCIUM (MANUFACTURER UNKNOWN) [Suspect]
     Active Substance: LEUCOVORIN CALCIUM
     Indication: OESOPHAGEAL CARCINOMA
     Route: 065
  2. PACLITAXEL (MANUFACTURER UNKNOWN) [Suspect]
     Active Substance: PACLITAXEL
     Indication: OESOPHAGEAL CARCINOMA
     Route: 065
  3. DOCETAXEL (MANUFACTURER UNKNOWN) [Suspect]
     Active Substance: DOCETAXEL
     Indication: OESOPHAGEAL CARCINOMA
     Route: 065
  4. RAMUCIRUMAB [Suspect]
     Active Substance: RAMUCIRUMAB
     Indication: OESOPHAGEAL CARCINOMA
     Route: 065
  5. CISPLATIN (MANUFACTURER UNKNOWN) [Suspect]
     Active Substance: CISPLATIN
     Indication: OESOPHAGEAL CARCINOMA
     Route: 065
     Dates: start: 201611, end: 201701
  6. IRINOTECAN (MANUFACTURER UNKNOWN) [Suspect]
     Active Substance: IRINOTECAN
     Indication: OESOPHAGEAL CARCINOMA
     Route: 065
     Dates: start: 201708, end: 201805
  7. FLUOROURACIL. [Suspect]
     Active Substance: FLUOROURACIL
     Indication: OESOPHAGEAL CARCINOMA
     Route: 065

REACTIONS (3)
  - Disease progression [Unknown]
  - Leukopenia [Unknown]
  - Neutropenia [Unknown]
